FAERS Safety Report 6261736-3 (Version None)
Quarter: 2009Q3

REPORT INFORMATION
  Report Type: 
  Country: None (occurrence: None)
  Receive Date: 20090707
  Receipt Date: 20090707
  Transmission Date: 20100115
  Serious: Yes (Life-Threatening)
  Sender: FDA-Public Use
  Company Number: None

PATIENT
  Age: 49 Year
  Sex: Female
  Weight: 58.0604 kg

DRUGS (1)
  1. DIFLUNISAL [Suspect]
     Indication: RHEUMATOID ARTHRITIS
     Dosage: 500 MG TWICE A DAY PO
     Route: 048
     Dates: start: 20090702, end: 20090703

REACTIONS (2)
  - DRUG HYPERSENSITIVITY [None]
  - DRUG PRESCRIBING ERROR [None]
